FAERS Safety Report 9233273 (Version 1)
Quarter: 2013Q2

REPORT INFORMATION
  Report Type: Spontaneous
  Country: US (occurrence: None)
  Receive Date: 20130415
  Receipt Date: 20130415
  Transmission Date: 20140414
  Serious: Yes (Other)
  Sender: FDA-Public Use
  Company Number: None

PATIENT
  Age: 32 Year
  Sex: Female
  Weight: 90.27 kg

DRUGS (1)
  1. APIDRA [Suspect]
     Indication: DIABETES MELLITUS

REACTIONS (5)
  - Feeling hot [None]
  - Hyperhidrosis [None]
  - Incoherent [None]
  - Speech disorder [None]
  - Syncope [None]
